FAERS Safety Report 6042009-0 (Version None)
Quarter: 2009Q1

REPORT INFORMATION
  Report Type: 
  Country: None (occurrence: None)
  Receive Date: 20090116
  Receipt Date: 20090109
  Transmission Date: 20090719
  Serious: Yes (Hospitalization, Other)
  Sender: FDA-Public Use
  Company Number: US-MERCK-0711USA01866

PATIENT
  Age: 67 Year
  Sex: Female

DRUGS (9)
  1. FOSAMAX [Suspect]
     Indication: OSTEOPOROSIS
     Route: 048
     Dates: start: 19970101, end: 19970801
  2. FOSAMAX [Suspect]
     Route: 048
     Dates: start: 19980601
  3. FOSAMAX [Suspect]
     Route: 048
     Dates: start: 20010101, end: 20060901
  4. FOSAMAX [Suspect]
     Indication: OSTEOPENIA
     Route: 048
     Dates: start: 19970101, end: 19970801
  5. FOSAMAX [Suspect]
     Route: 048
     Dates: start: 19980601
  6. FOSAMAX [Suspect]
     Route: 048
     Dates: start: 20010101, end: 20060901
  7. PREMARIN [Concomitant]
     Route: 065
  8. PROVERA [Concomitant]
     Route: 065
  9. ZYLOPRIM [Concomitant]
     Route: 065

REACTIONS (41)
  - ABDOMINAL DISCOMFORT [None]
  - ABDOMINAL DISTENSION [None]
  - ADVERSE DRUG REACTION [None]
  - AMNESIA [None]
  - ARTHRALGIA [None]
  - ARTHRITIS [None]
  - BACK DISORDER [None]
  - BASAL CELL CARCINOMA [None]
  - BLOOD PRESSURE INCREASED [None]
  - CHEST PAIN [None]
  - CONCUSSION [None]
  - CONSTIPATION [None]
  - COUGH [None]
  - DIARRHOEA [None]
  - DIZZINESS [None]
  - DYSPHAGIA [None]
  - FALL [None]
  - FATIGUE [None]
  - FRACTURE [None]
  - GASTROOESOPHAGEAL REFLUX DISEASE [None]
  - GINGIVITIS [None]
  - GOUT [None]
  - HYPERTONIC BLADDER [None]
  - HYPOTHYROIDISM [None]
  - INCONTINENCE [None]
  - MEMORY IMPAIRMENT [None]
  - NODULE [None]
  - OESOPHAGEAL INJURY [None]
  - ORAL HERPES [None]
  - ORAL INFECTION [None]
  - ORAL TORUS [None]
  - OROPHARYNGEAL PAIN [None]
  - OSTEONECROSIS [None]
  - PYREXIA [None]
  - RAYNAUD'S PHENOMENON [None]
  - SEASONAL ALLERGY [None]
  - SINUS DISORDER [None]
  - SKIN CANCER [None]
  - SNEEZING [None]
  - STRESS URINARY INCONTINENCE [None]
  - TRANSIENT ISCHAEMIC ATTACK [None]
